FAERS Safety Report 25656142 (Version 2)
Quarter: 2025Q3

REPORT INFORMATION
  Report Type: Report from Study
  Country: US (occurrence: US)
  Receive Date: 20250807
  Receipt Date: 20250905
  Transmission Date: 20251021
  Serious: Yes (Other)
  Sender: ABBVIE
  Company Number: US-ABBVIE-6401946

PATIENT
  Age: 58 Year
  Sex: Male

DRUGS (1)
  1. RINVOQ [Suspect]
     Active Substance: UPADACITINIB
     Indication: Rheumatoid arthritis
     Route: 048
     Dates: start: 20250224

REACTIONS (5)
  - Stoma creation [Unknown]
  - Hernia [Unknown]
  - Pneumonia [Unknown]
  - Sinus congestion [Recovering/Resolving]
  - Stoma site infection [Recovering/Resolving]

NARRATIVE: CASE EVENT DATE: 20250101
